FAERS Safety Report 15563096 (Version 1)
Quarter: 2018Q4

REPORT INFORMATION
  Report Type: Spontaneous
  Country: NL (occurrence: NL)
  Receive Date: 20181029
  Receipt Date: 20181029
  Transmission Date: 20190205
  Serious: Yes (Hospitalization)
  Sender: FDA-Public Use
  Company Number: NL-MYLANLABS-2018M1080447

PATIENT
  Age: 73 Year
  Sex: Male

DRUGS (3)
  1. RIFAMPICIN [Suspect]
     Active Substance: RIFAMPIN
     Indication: MYCOBACTERIAL INFECTION
     Dosage: UNK
  2. ETHAMBUTOL [Suspect]
     Active Substance: ETHAMBUTOL HYDROCHLORIDE
     Indication: MYCOBACTERIAL INFECTION
     Dosage: UNK
  3. ISONIAZID. [Suspect]
     Active Substance: ISONIAZID
     Indication: MYCOBACTERIAL INFECTION
     Dosage: UNK

REACTIONS (7)
  - Leukocytosis [Recovering/Resolving]
  - Abscess [Recovering/Resolving]
  - C-reactive protein increased [Recovering/Resolving]
  - Asthenia [Recovering/Resolving]
  - Pyrexia [Recovering/Resolving]
  - Tachycardia [Recovering/Resolving]
  - Malaise [Recovering/Resolving]

NARRATIVE: CASE EVENT DATE: 2016
